FAERS Safety Report 19247304 (Version 1)
Quarter: 2021Q2

REPORT INFORMATION
  Report Type: Spontaneous
  Country: US (occurrence: US)
  Receive Date: 20210512
  Receipt Date: 20210512
  Transmission Date: 20210717
  Serious: Yes (Death)
  Sender: FDA-Public Use
  Company Number: None

PATIENT
  Age: 52 Year
  Sex: Male

DRUGS (14)
  1. BUMETANIDE. [Concomitant]
     Active Substance: BUMETANIDE
  2. UPTRAVI [Concomitant]
     Active Substance: SELEXIPAG
  3. ALLOPURINOL. [Concomitant]
     Active Substance: ALLOPURINOL
  4. ATORVASTATOM [Concomitant]
  5. SILDENAFIL 20MG TAB [Suspect]
     Active Substance: SILDENAFIL
     Indication: PULMONARY ARTERIAL HYPERTENSION
     Route: 048
     Dates: start: 20180606, end: 20210506
  6. POT CHLORIDER ER [Concomitant]
  7. BENZONATATE. [Concomitant]
     Active Substance: BENZONATATE
  8. METOLAZONE. [Concomitant]
     Active Substance: METOLAZONE
  9. MAGNESIUM [Concomitant]
     Active Substance: MAGNESIUM
  10. COLCHICINE. [Concomitant]
     Active Substance: COLCHICINE
  11. GLIPIZIDE XL [Concomitant]
     Active Substance: GLIPIZIDE
  12. METFORMIN [Concomitant]
     Active Substance: METFORMIN HYDROCHLORIDE
  13. METOPROL TAR [Concomitant]
  14. ASPIRIN. [Concomitant]
     Active Substance: ASPIRIN

REACTIONS (1)
  - Death [None]

NARRATIVE: CASE EVENT DATE: 20210506
